FAERS Safety Report 16379372 (Version 1)
Quarter: 2019Q2

REPORT INFORMATION
  Report Type: Spontaneous
  Country: CZ (occurrence: CZ)
  Receive Date: 20190531
  Receipt Date: 20190531
  Transmission Date: 20190711
  Serious: Yes (Life-Threatening, Hospitalization, Other)
  Sender: FDA-Public Use
  Company Number: CZ-TEVA-2019-CZ-1055670

PATIENT

DRUGS (1)
  1. OXALIPLATIN. [Suspect]
     Active Substance: OXALIPLATIN
     Indication: COLORECTAL CANCER
     Route: 042

REACTIONS (4)
  - Systemic inflammatory response syndrome [Recovered/Resolved]
  - Renal impairment [Recovered/Resolved]
  - Evans syndrome [Recovered/Resolved]
  - Coagulopathy [Recovered/Resolved]
